FAERS Safety Report 5220805-7 (Version None)
Quarter: 2007Q1

REPORT INFORMATION
  Report Type: 
  Country: None (occurrence: None)
  Receive Date: 20070126
  Receipt Date: 20070115
  Transmission Date: 20070707
  Serious: Yes (Hospitalization)
  Sender: FDA-Public Use
  Company Number: PHRM2007FR00531

PATIENT
  Age: 71 Year
  Sex: Female

DRUGS (1)
  1. ZOMETA [Suspect]
     Indication: METASTASES TO BONE
     Dosage: UNK, UNK
     Route: 042
     Dates: start: 20050101, end: 20061208

REACTIONS (8)
  - GINGIVAL BLEEDING [None]
  - IMPAIRED HEALING [None]
  - MASTICATION DISORDER [None]
  - OSTEONECROSIS [None]
  - OSTEOSCLEROSIS [None]
  - TOOTH ABSCESS [None]
  - TOOTH LOSS [None]
  - TOOTHACHE [None]
